FAERS Safety Report 21635772 (Version 1)
Quarter: 2022Q4

REPORT INFORMATION
  Report Type: Spontaneous
  Country: JP (occurrence: JP)
  Receive Date: 20221123
  Receipt Date: 20221123
  Transmission Date: 20230113
  Serious: Yes (Hospitalization, Other)
  Sender: FDA-Public Use
  Company Number: JP-SA-2022SA435530

PATIENT
  Age: 36 Year
  Sex: Male

DRUGS (3)
  1. LANTUS SOLOSTAR [Suspect]
     Active Substance: INSULIN GLARGINE
     Indication: Type 1 diabetes mellitus
     Dosage: UNK
     Route: 058
  2. LANTUS SOLOSTAR [Suspect]
     Active Substance: INSULIN GLARGINE
     Dosage: 16 U AT BEDTIME
     Route: 058
  3. INSULIN LISPRO [Suspect]
     Active Substance: INSULIN LISPRO
     Indication: Product used for unknown indication
     Dosage: 8 U IMMEDIATELY BEFORE EACH MEAL
     Route: 065

REACTIONS (6)
  - Acetabulum fracture [Recovering/Resolving]
  - Arthralgia [Recovered/Resolved]
  - Chondropathy [Recovering/Resolving]
  - Hypoglycaemia [Unknown]
  - Loss of consciousness [Recovered/Resolved]
  - Seizure [Unknown]
